FAERS Safety Report 7327148-6 (Version None)
Quarter: 2011Q1

REPORT INFORMATION
  Report Type: 
  Country: None (occurrence: None)
  Receive Date: 20110302
  Receipt Date: 20110225
  Transmission Date: 20110831
  Serious: Yes (Other)
  Sender: FDA-Public Use
  Company Number: US-PFIZER INC-2011043056

PATIENT
  Sex: Female

DRUGS (4)
  1. CLONIDINE [Suspect]
     Dosage: UNK
  2. MILNACIPRAN HYDROCHLORIDE [Suspect]
     Dosage: UNK
  3. VALIUM [Suspect]
     Dosage: UNK
  4. NEURONTIN [Suspect]
     Dosage: UNK

REACTIONS (1)
  - SPINAL OPERATION [None]
